FAERS Safety Report 23522905 (Version 1)
Quarter: 2024Q1

REPORT INFORMATION
  Report Type: Spontaneous
  Country: US (occurrence: None)
  Receive Date: 20240213
  Receipt Date: 20240213
  Transmission Date: 20240409
  Serious: Yes (Hospitalization)
  Sender: FDA-Public Use
  Company Number: None

PATIENT
  Age: 47 Year
  Sex: Female
  Weight: 46.35 kg

DRUGS (10)
  1. LAMOTRIGINE [Suspect]
     Active Substance: LAMOTRIGINE
     Indication: Bipolar II disorder
     Route: 048
     Dates: start: 20231101, end: 20231129
  2. GABAPENTIN [Concomitant]
     Active Substance: GABAPENTIN
  3. SOMA [Concomitant]
     Active Substance: CARISOPRODOL
  4. NORCO [Concomitant]
     Active Substance: ACETAMINOPHEN\HYDROCODONE BITARTRATE
  5. Sporonolactone [Concomitant]
  6. DOXYCYCLINE [Concomitant]
     Active Substance: DOXYCYCLINE
  7. FETZIMA [Concomitant]
     Active Substance: LEVOMILNACIPRAN HYDROCHLORIDE
  8. LIOTHYRONINE [Concomitant]
     Active Substance: LIOTHYRONINE
  9. VITAMINS [Concomitant]
     Active Substance: VITAMINS
  10. NAC [Concomitant]

REACTIONS (2)
  - Eye movement disorder [None]
  - Vertigo [None]

NARRATIVE: CASE EVENT DATE: 20231123
